FAERS Safety Report 10620254 (Version 3)
Quarter: 2015Q1

REPORT INFORMATION
  Report Type: Spontaneous
  Country: US (occurrence: US)
  Receive Date: 20141202
  Receipt Date: 20150130
  Transmission Date: 20150720
  Serious: No
  Sender: FDA-Public Use
  Company Number: US-PFIZER INC-2014329828

PATIENT
  Age: 17 Year
  Sex: Female

DRUGS (1)
  1. ZOLOFT [Suspect]
     Active Substance: SERTRALINE HYDROCHLORIDE
     Indication: ANXIETY
     Dosage: 100 MG, ONCE A DAY (QHS)
     Route: 048
     Dates: start: 20141002, end: 2014

REACTIONS (1)
  - Gastrointestinal viral infection [Unknown]

NARRATIVE: CASE EVENT DATE: 2014
